FAERS Safety Report 7756748-4 (Version None)
Quarter: 2011Q3

REPORT INFORMATION
  Report Type: 
  Country: None (occurrence: None)
  Receive Date: 20110916
  Receipt Date: 20110907
  Transmission Date: 20111222
  Serious: Yes (Other)
  Sender: FDA-Public Use
  Company Number: DE-UCBSA-020081

PATIENT
  Age: 32 Year
  Sex: Female

DRUGS (2)
  1. NO CONCOMITANT MEDICATION [Concomitant]
  2. KEPPRA [Suspect]
     Indication: EPILEPSY
     Dosage: DAILY DOSE: 1000MG

REACTIONS (2)
  - ABORTION SPONTANEOUS [None]
  - PREGNANCY [None]
